FAERS Safety Report 16802902 (Version 1)
Quarter: 2019Q3

REPORT INFORMATION
  Report Type: Spontaneous
  Country: IT (occurrence: IT)
  Receive Date: 20190913
  Receipt Date: 20190913
  Transmission Date: 20191005
  Serious: Yes (Hospitalization)
  Sender: FDA-Public Use
  Company Number: PHHY2019IT207818

PATIENT
  Age: 4 Year
  Sex: Female
  Weight: 55 kg

DRUGS (1)
  1. DABRAFENIB [Suspect]
     Active Substance: DABRAFENIB
     Indication: BRAIN NEOPLASM
     Dosage: 300 MG, CYCLIC
     Route: 048
     Dates: start: 20190409, end: 20190827

REACTIONS (3)
  - Herpes zoster [Unknown]
  - Pyrexia [Unknown]
  - Headache [Unknown]

NARRATIVE: CASE EVENT DATE: 20190827
